FAERS Safety Report 5940966-1 (Version None)
Quarter: 2008Q4

REPORT INFORMATION
  Report Type: 
  Country: None (occurrence: None)
  Receive Date: 20081104
  Receipt Date: 20081027
  Transmission Date: 20090506
  Serious: Yes (Other)
  Sender: FDA-Public Use
  Company Number: PHHY2008GR22435

PATIENT
  Age: 38 Year
  Sex: Female

DRUGS (1)
  1. ZADITEN [Suspect]
     Dosage: 1 MG
     Dates: start: 20050101, end: 20080901

REACTIONS (1)
  - GAMMA-GLUTAMYLTRANSFERASE INCREASED [None]
